FAERS Safety Report 14463176 (Version 1)
Quarter: 2018Q1

REPORT INFORMATION
  Report Type: Spontaneous
  Country: US (occurrence: US)
  Receive Date: 20180130
  Receipt Date: 20180130
  Transmission Date: 20180509
  Serious: No
  Sender: FDA-Public Use
  Company Number: US-009507513-1801USA010817

PATIENT
  Age: 26 Year
  Sex: Female
  Weight: 67.57 kg

DRUGS (6)
  1. TRAZODONE HYDROCHLORIDE. [Concomitant]
     Active Substance: TRAZODONE HYDROCHLORIDE
  2. NEXPLANON [Suspect]
     Active Substance: ETONOGESTREL
     Indication: CONTRACEPTION
     Dosage: 1 ROD EVERY THREE YEARS IN HER LEFT ARM
     Route: 059
  3. NAPROXEN. [Concomitant]
     Active Substance: NAPROXEN
  4. DIFLUCAN [Concomitant]
     Active Substance: FLUCONAZOLE
  5. TOPAMAX [Concomitant]
     Active Substance: TOPIRAMATE
  6. RANITIDINE. [Concomitant]
     Active Substance: RANITIDINE

REACTIONS (4)
  - Complication associated with device [Recovered/Resolved]
  - Menometrorrhagia [Not Recovered/Not Resolved]
  - Complication of device removal [Not Recovered/Not Resolved]
  - Device deployment issue [Not Recovered/Not Resolved]

NARRATIVE: CASE EVENT DATE: 20180125
